FAERS Safety Report 6585414-6 (Version None)
Quarter: 2010Q1

REPORT INFORMATION
  Report Type: 
  Country: None (occurrence: None)
  Receive Date: 20100217
  Receipt Date: 20100215
  Transmission Date: 20100710
  Serious: Yes (Other)
  Sender: FDA-Public Use
  Company Number: A0844514A

PATIENT
  Age: 62 Year
  Sex: Female

DRUGS (6)
  1. TYKERB [Suspect]
     Indication: BREAST CANCER
     Dosage: 1250MG PER DAY
     Route: 048
     Dates: start: 20091115
  2. XELODA [Concomitant]
  3. BABY ASPIRIN [Concomitant]
  4. EFFEXOR XR [Concomitant]
  5. M.V.I. [Concomitant]
  6. FASLODEX [Concomitant]

REACTIONS (5)
  - ABDOMINAL DISCOMFORT [None]
  - ERYTHEMA [None]
  - IMPAIRED HEALING [None]
  - NEUROPATHY PERIPHERAL [None]
  - SKIN LACERATION [None]
